FAERS Safety Report 22628397 (Version 1)
Quarter: 2023Q2

REPORT INFORMATION
  Report Type: Report from Study
  Country: CA (occurrence: CA)
  Receive Date: 20230622
  Receipt Date: 20230622
  Transmission Date: 20230722
  Serious: Yes (Life-Threatening, Hospitalization, Other)
  Sender: FDA-Public Use
  Company Number: None

PATIENT
  Age: 56 Year
  Sex: Female

DRUGS (5)
  1. MONTELUKAST [Suspect]
     Active Substance: MONTELUKAST SODIUM
     Indication: Chronic spontaneous urticaria
     Route: 048
  2. HYDROXYZINE [Suspect]
     Active Substance: HYDROXYZINE HYDROCHLORIDE
     Indication: Chronic spontaneous urticaria
     Route: 048
  3. PREDNISONE [Concomitant]
     Active Substance: PREDNISONE
     Indication: Product used for unknown indication
  4. REACTINE [Concomitant]
     Indication: Chronic spontaneous urticaria
     Route: 048
  5. RUPATADINE FUMARATE [Concomitant]
     Active Substance: RUPATADINE FUMARATE
     Indication: Chronic spontaneous urticaria
     Route: 048

REACTIONS (17)
  - Anxiety [Unknown]
  - Blood glucose decreased [Unknown]
  - Crying [Unknown]
  - Erythema [Unknown]
  - Hypertension [Unknown]
  - Insomnia [Unknown]
  - Malaise [Unknown]
  - Mobility decreased [Unknown]
  - Pain [Unknown]
  - Product use in unapproved indication [Unknown]
  - Pruritus [Unknown]
  - Pyrexia [Unknown]
  - Rash [Unknown]
  - Scratch [Unknown]
  - Suicidal ideation [Unknown]
  - Swelling face [Unknown]
  - Urticaria [Unknown]
